FAERS Safety Report 18446125 (Version 3)
Quarter: 2020Q4

REPORT INFORMATION
  Report Type: Report from Study
  Country: GB (occurrence: GB)
  Receive Date: 20201030
  Receipt Date: 20201231
  Transmission Date: 20210114
  Serious: Yes (Other)
  Sender: FDA-Public Use
  Company Number: GB-JNJFOC-20200824818

PATIENT
  Age: 3 Decade
  Sex: Female

DRUGS (3)
  1. STELARA [Suspect]
     Active Substance: USTEKINUMAB
     Indication: CROHN^S DISEASE
     Route: 058
     Dates: start: 201905
  2. SERTRALINE [Concomitant]
     Active Substance: SERTRALINE HYDROCHLORIDE
  3. STELARA [Suspect]
     Active Substance: USTEKINUMAB
     Indication: COLITIS ULCERATIVE
     Route: 058
     Dates: start: 20200120

REACTIONS (6)
  - Nasopharyngitis [Unknown]
  - Ileostomy [Unknown]
  - Crohn^s disease [Recovering/Resolving]
  - Spinal pain [Unknown]
  - Sepsis [Recovering/Resolving]
  - Bone contusion [Unknown]
